FAERS Safety Report 8491889-8 (Version None)
Quarter: 2012Q3

REPORT INFORMATION
  Report Type: 
  Country: None (occurrence: None)
  Receive Date: 20120706
  Receipt Date: 20111011
  Transmission Date: 20120928
  Serious: No
  Sender: FDA-Public Use
  Company Number: US-GLAXOSMITHKLINE-A0948643A

PATIENT
  Age: 1 Year
  Sex: Male

DRUGS (3)
  1. PRILOSEC [Concomitant]
  2. CLARITIN [Concomitant]
  3. FLOVENT [Suspect]
     Indication: ASTHMA
     Dosage: 2PUFF TWICE PER DAY
     Route: 055
     Dates: start: 20080501

REACTIONS (3)
  - DEHYDRATION [None]
  - PYREXIA [None]
  - EAR INFECTION [None]
